FAERS Safety Report 17361882 (Version 6)
Quarter: 2021Q4

REPORT INFORMATION
  Report Type: Spontaneous
  Country: JP (occurrence: JP)
  Receive Date: 20200203
  Receipt Date: 20211106
  Transmission Date: 20220304
  Serious: Yes (Hospitalization, Other)
  Sender: FDA-Public Use
  Company Number: JP-AMGEN-JPNSP2020016228

PATIENT
  Age: 92 Year
  Sex: Male
  Weight: 46 kg

DRUGS (16)
  1. EVENITY [Suspect]
     Active Substance: ROMOSOZUMAB-AQQG
     Indication: Osteoporosis
     Dosage: 210 MILLIGRAM
     Route: 058
     Dates: start: 20190621
  2. EVENITY [Suspect]
     Active Substance: ROMOSOZUMAB-AQQG
     Indication: Lumbar vertebral fracture
  3. VONOPRAZAN FUMARATE [Concomitant]
     Active Substance: VONOPRAZAN FUMARATE
     Dosage: UNK
  4. PLAVIX [Concomitant]
     Active Substance: CLOPIDOGREL BISULFATE
     Dosage: 100 MILLIGRAM, QD
  5. UNISIA [Concomitant]
     Active Substance: AMLODIPINE BESYLATE\CANDESARTAN CILEXETIL
     Indication: Hypertension
     Dosage: 1 DOSAGE FORM, QD (STARTED MANY YEARS BEFORE)
  6. RABEPRAZOLE SODIUM [Concomitant]
     Active Substance: RABEPRAZOLE SODIUM
     Indication: Gastrooesophageal reflux disease
     Dosage: 10 MILLIGRAM, QD (STARTED MANY YEARS BEFORE)
  7. NAFTOPIDIL [Concomitant]
     Active Substance: NAFTOPIDIL
     Dosage: 50 MILLIGRAM, QD
  8. ELDECALCITOL [Concomitant]
     Active Substance: ELDECALCITOL
     Indication: Osteoporosis
     Dosage: 0.75 MICROGRAM, QD (STARTED 1 TABLET OF 0.75 MCG ONCE DAILY MANY YEARS BEFORE)
     Dates: start: 20151208
  9. ARICEPT [Concomitant]
     Active Substance: DONEPEZIL HYDROCHLORIDE
     Indication: Dementia Alzheimer^s type
     Dosage: 5 MILLIGRAM, QD (STARTED ONE TABLET OF 5MG ONCE DAILY MAN YEARS BEFORE )
  10. TRAMADOL [Concomitant]
     Active Substance: TRAMADOL
     Indication: Lumbar vertebral fracture
     Dosage: 25 MILLIGRAM, BID (STARTED ONE TABLET OG 25 MG TWICE DAILYMANY YEARS BEFORE)
  11. HALCION [Concomitant]
     Active Substance: TRIAZOLAM
     Dosage: 0.25 MILLIGRAM, QD
  12. DUTASTERIDE [Concomitant]
     Active Substance: DUTASTERIDE
     Indication: Benign prostatic hyperplasia
     Dosage: 1 DOSAGE FORM (0.5), QD, STARTED MANY YEARS BEFORE
  13. VESICARE [Concomitant]
     Active Substance: SOLIFENACIN SUCCINATE
     Indication: Hypertonic bladder
     Dosage: 5 MILLIGRAM (1 TABLET), QD, SINCE MANY YEARS
  14. SCOPOLIA EXTRACT [SCOPOLIA CARNIOLICA EXTRACT] [Concomitant]
     Indication: Chronic gastritis
     Dosage: 0.2 GRAM, TID, SINCE MANY YEARS
  15. TEPRENONE [Concomitant]
     Active Substance: TEPRENONE
     Indication: Chronic gastritis
     Dosage: 0.5 GRAM, TID, SINCE MANY YEARS
  16. BROTIZOLAM [Concomitant]
     Active Substance: BROTIZOLAM
     Indication: Insomnia
     Dosage: 1 DOSAGE FORM (0.25), QD, SINCE MANY YEARS

REACTIONS (3)
  - Peripheral arterial occlusive disease [Recovered/Resolved]
  - Acute myocardial infarction [Recovered/Resolved]
  - Off label use [Unknown]

NARRATIVE: CASE EVENT DATE: 20191203
